FAERS Safety Report 12374637 (Version 1)
Quarter: 2016Q2

REPORT INFORMATION
  Report Type: Spontaneous
  Country: US (occurrence: None)
  Receive Date: 20160516
  Receipt Date: 20160516
  Transmission Date: 20160815
  Serious: Yes (Disabling)
  Sender: FDA-Public Use
  Company Number: None

PATIENT
  Age: 45 Year
  Sex: Female
  Weight: 72.58 kg

DRUGS (3)
  1. ZYRTEC [Concomitant]
     Active Substance: CETIRIZINE HYDROCHLORIDE
  2. ONE-A-DAY WOMEN^S VITAMIN [Concomitant]
  3. FLONASE [Suspect]
     Active Substance: FLUTICASONE PROPIONATE
     Indication: SEASONAL ALLERGY
     Dosage: IN THE MORNING INHALATION
     Route: 055
     Dates: start: 20150801, end: 20160502

REACTIONS (5)
  - Pain [None]
  - Neuropathy peripheral [None]
  - Neuralgia [None]
  - Dehydration [None]
  - Hypoaesthesia [None]

NARRATIVE: CASE EVENT DATE: 20160201
